FAERS Safety Report 10098883 (Version 2)
Quarter: 2014Q2

REPORT INFORMATION
  Report Type: Spontaneous
  Country: US (occurrence: US)
  Receive Date: 20140423
  Receipt Date: 20140423
  Transmission Date: 20141212
  Serious: Yes (Hospitalization)
  Sender: FDA-Public Use
  Company Number: US-DENDREON CORPORATION-2014PROUSA03649

PATIENT
  Age: 73 Year
  Sex: Male

DRUGS (4)
  1. PROVENGE [Suspect]
     Indication: PROSTATE CANCER METASTATIC
     Dosage: 250 ML, SINGLE
     Route: 042
     Dates: start: 20140411, end: 20140411
  2. BENADRYL [Concomitant]
     Indication: PREMEDICATION
     Dosage: UNK, SINGLE
     Dates: start: 20140411
  3. ACETAMINOPHEN [Concomitant]
     Indication: PREMEDICATION
     Dosage: UNK, SINGLE
     Dates: start: 20140411
  4. PEPCID [Concomitant]
     Indication: PREMEDICATION
     Dosage: UNK, SINGLE
     Dates: start: 20140411

REACTIONS (5)
  - Syncope [Recovered/Resolved]
  - Hypotension [Recovered/Resolved]
  - Visual impairment [Recovered/Resolved]
  - Infusion related reaction [Recovered/Resolved]
  - Dizziness [Recovered/Resolved]
